FAERS Safety Report 6408303-6 (Version None)
Quarter: 2009Q4

REPORT INFORMATION
  Report Type: 
  Country: None (occurrence: None)
  Receive Date: 20091021
  Receipt Date: 20091012
  Transmission Date: 20100525
  Serious: Yes (Death, Life-Threatening, Hospitalization)
  Sender: FDA-Public Use
  Company Number: SE-NOVOPROD-292745

PATIENT
  Age: 54 Year
  Sex: Female

DRUGS (4)
  1. ACTIVELLE [Suspect]
     Indication: MENOPAUSAL SYMPTOMS
     Route: 048
     Dates: start: 20090601
  2. ALLI [Suspect]
     Indication: DRUG USE FOR UNKNOWN INDICATION
     Dates: start: 20090501, end: 20090701
  3. FRAGMIN [Suspect]
     Indication: PULMONARY EMBOLISM
     Dates: start: 20090616, end: 20090619
  4. EFAMOL                             /00986101/ [Concomitant]
     Indication: MENOPAUSAL SYMPTOMS

REACTIONS (6)
  - APLASTIC ANAEMIA [None]
  - CEREBRAL HAEMORRHAGE [None]
  - CLOSTRIDIUM COLITIS [None]
  - ENTEROCOCCAL SEPSIS [None]
  - PULMONARY EMBOLISM [None]
  - RETROPERITONEAL NEOPLASM [None]
